FAERS Safety Report 10329534 (Version 1)
Quarter: 2014Q3

REPORT INFORMATION
  Report Type: Spontaneous
  Country: FR (occurrence: FR)
  Receive Date: 20140721
  Receipt Date: 20140721
  Transmission Date: 20150326
  Serious: Yes (Hospitalization)
  Sender: FDA-Public Use
  Company Number: FR-BAYER-2014-102499

PATIENT
  Age: 79 Year
  Sex: Male

DRUGS (14)
  1. FLAGYL [Concomitant]
     Active Substance: METRONIDAZOLE\METRONIDAZOLE HYDROCHLORIDE
  2. METEOSPASMYL [ALVERINE CITRATE,DL-METHIONINE] [Concomitant]
  3. STIVARGA [Suspect]
     Active Substance: REGORAFENIB
     Dosage: 3 DF, QD
     Route: 048
     Dates: start: 20140313, end: 20140318
  4. CEFOTAXIME [Concomitant]
     Active Substance: CEFOTAXIME\CEFOTAXIME SODIUM
  5. CONTRAMAL [Concomitant]
     Active Substance: TRAMADOL HYDROCHLORIDE
  6. ATARAX [Concomitant]
     Active Substance: HYDROXYZINE\HYDROXYZINE HYDROCHLORIDE
  7. STIVARGA [Suspect]
     Active Substance: REGORAFENIB
     Dosage: 2 DF, QD
     Route: 048
     Dates: start: 20140310
  8. ACUPAN [Concomitant]
     Active Substance: NEFOPAM HYDROCHLORIDE
  9. IMUREL [Concomitant]
     Active Substance: AZATHIOPRINE SODIUM
  10. SPASFON [Concomitant]
     Active Substance: PHLOROGLUCINOL
  11. HYDROCORTISONE. [Concomitant]
     Active Substance: HYDROCORTISONE
  12. LOXEN [Concomitant]
     Active Substance: NICARDIPINE HYDROCHLORIDE
  13. MOTILIUM [Concomitant]
     Active Substance: DOMPERIDONE
  14. MORPHINE [Concomitant]
     Active Substance: MORPHINE

REACTIONS (2)
  - Small intestinal perforation [Unknown]
  - Peritonitis [Unknown]

NARRATIVE: CASE EVENT DATE: 20140318
